FAERS Safety Report 16099968 (Version 3)
Quarter: 2019Q2

REPORT INFORMATION
  Report Type: Spontaneous
  Country: US (occurrence: US)
  Receive Date: 20190321
  Receipt Date: 20190628
  Transmission Date: 20190711
  Serious: No
  Sender: FDA-Public Use
  Company Number: US-PFIZER INC-2019123666

PATIENT
  Sex: Female
  Weight: 130 kg

DRUGS (3)
  1. MELOXICAM. [Interacting]
     Active Substance: MELOXICAM
     Dosage: UNK
  2. CELEBREX [Suspect]
     Active Substance: CELECOXIB
     Dosage: UNK
  3. TIKOSYN [Interacting]
     Active Substance: DOFETILIDE
     Indication: ATRIAL FIBRILLATION
     Dosage: 125 UG, 2X/DAY
     Route: 048
     Dates: start: 201811

REACTIONS (1)
  - Drug interaction [Unknown]
